FAERS Safety Report 12312642 (Version 2)
Quarter: 2016Q3

REPORT INFORMATION
  Report Type: Spontaneous
  Country: AR (occurrence: AR)
  Receive Date: 20160428
  Receipt Date: 20160917
  Transmission Date: 20161109
  Serious: Yes (Other)
  Sender: FDA-Public Use
  Company Number: AR-AMGEN-ARGSP2016053247

PATIENT
  Age: 67 Year
  Sex: Female

DRUGS (1)
  1. ENBREL [Suspect]
     Active Substance: ETANERCEPT
     Indication: RHEUMATOID ARTHRITIS
     Dosage: 50 MG, WEEKLY
     Route: 065
     Dates: start: 20110301

REACTIONS (10)
  - Cough [Recovered/Resolved]
  - Condition aggravated [Unknown]
  - Joint swelling [Recovered/Resolved]
  - Decreased immune responsiveness [Unknown]
  - Ovarian cyst [Recovered/Resolved]
  - Arthropathy [Recovered/Resolved]
  - Pain [Unknown]
  - Seasonal allergy [Recovered/Resolved]
  - Bronchospasm [Recovered/Resolved]
  - Arthralgia [Not Recovered/Not Resolved]

NARRATIVE: CASE EVENT DATE: 201501
